FAERS Safety Report 9644846 (Version 3)
Quarter: 2013Q4

REPORT INFORMATION
  Report Type: Report from Study
  Country: BR (occurrence: BR)
  Receive Date: 20131025
  Receipt Date: 20131105
  Transmission Date: 20140711
  Serious: Yes (Other)
  Sender: FDA-Public Use
  Company Number: PHHY2013BR083564

PATIENT
  Sex: Female

DRUGS (3)
  1. ACLASTA [Suspect]
     Indication: OSTEOPOROSIS
     Dosage: 5 MG, UNK
     Route: 042
  2. CALCIUM D3                         /00944201/ [Concomitant]
     Dosage: UNK UKN, UNK
  3. ANCORON [Concomitant]
     Dosage: UNK UKN, UNK

REACTIONS (4)
  - Fall [Unknown]
  - Rib fracture [Unknown]
  - Memory impairment [Unknown]
  - Pain [Recovering/Resolving]
